FAERS Safety Report 6427653-0 (Version None)
Quarter: 2009Q4

REPORT INFORMATION
  Report Type: 
  Country: None (occurrence: None)
  Receive Date: 20091104
  Receipt Date: 20091028
  Transmission Date: 20100525
  Serious: Yes (Other)
  Sender: FDA-Public Use
  Company Number: CA-ABBOTT-09P-028-0605896-00

PATIENT
  Sex: Female

DRUGS (1)
  1. MAVIK [Suspect]
     Indication: HYPERTENSION
     Dates: start: 20061115, end: 20070315

REACTIONS (2)
  - NAUSEA [None]
  - VOMITING [None]
